FAERS Safety Report 18226829 (Version 1)
Quarter: 2020Q3

REPORT INFORMATION
  Report Type: Spontaneous
  Country: IN (occurrence: IN)
  Receive Date: 20200903
  Receipt Date: 20200903
  Transmission Date: 20201103
  Serious: Yes (Life-Threatening, Hospitalization)
  Sender: FDA-Public Use
  Company Number: IN-STRIDES ARCOLAB LIMITED-2020SP010496

PATIENT
  Age: 28 Year
  Sex: Female

DRUGS (1)
  1. AMLODIPINE [Suspect]
     Active Substance: AMLODIPINE BESYLATE
     Indication: PRODUCT USED FOR UNKNOWN INDICATION
     Dosage: 400 MILLIGRAM (80 TABLETS OF AMLODIPINE 5MG)
     Route: 048

REACTIONS (11)
  - Overdose [Unknown]
  - Toxicity to various agents [Unknown]
  - Sinus tachycardia [Unknown]
  - Pulmonary oedema [Unknown]
  - Hypotension [Recovered/Resolved]
  - Somnolence [Unknown]
  - Tachypnoea [Unknown]
  - Ventricular hypokinesia [Unknown]
  - Rales [Unknown]
  - Vomiting [Unknown]
  - Dizziness [Unknown]
